FAERS Safety Report 15563063 (Version 5)
Quarter: 2019Q3

REPORT INFORMATION
  Report Type: Report from Study
  Country: GB (occurrence: DE)
  Receive Date: 20181029
  Receipt Date: 20190820
  Transmission Date: 20191004
  Serious: Yes (Life-Threatening, Other)
  Sender: FDA-Public Use
  Company Number: GB-MYLANLABS-2018M1066541

PATIENT
  Age: 65 Year
  Sex: Female

DRUGS (35)
  1. CORVATON [Suspect]
     Active Substance: MOLSIDOMINE
     Indication: MYOCARDIAL INFARCTION
     Dosage: 1 DF, QD IN TOTAL
     Route: 048
     Dates: start: 19990820, end: 19990820
  2. ESIDRIX [Suspect]
     Active Substance: HYDROCHLOROTHIAZIDE
     Indication: CARDIAC FAILURE
     Dosage: 0.5 DF, QD
     Route: 048
     Dates: start: 19990823, end: 19990830
  3. COPPER [Suspect]
     Active Substance: COPPER
     Indication: PRODUCT USED FOR UNKNOWN INDICATION
     Dosage: UNK
     Route: 048
  4. ARELIX                             /00630801/ [Suspect]
     Active Substance: PIRETANIDE
     Indication: CARDIAC FAILURE
     Dosage: 1 DF, QD
     Route: 048
     Dates: start: 19990820
  5. ASPIRIN. [Suspect]
     Active Substance: ASPIRIN
     Indication: THROMBOSIS PROPHYLAXIS
     Dosage: 100 MG, QD
     Route: 048
     Dates: start: 19990819
  6. ASPIRIN. [Suspect]
     Active Substance: ASPIRIN
     Dosage: 100 MILLIGRAM, QD, ACETYLSALICYLIC ACID (CARDIO)
     Route: 048
  7. RINGER^S SOLUTION                  /03112001/ [Concomitant]
     Active Substance: CALCIUM CHLORIDE\POTASSIUM CHLORIDE
     Indication: VOLUME BLOOD DECREASED
     Dosage: 500 ML, UNK
     Route: 042
     Dates: start: 19990819, end: 19990823
  8. ZYLORIC [Suspect]
     Active Substance: ALLOPURINOL
     Indication: HYPERURICAEMIA
     Dosage: 150 MG, QD
     Route: 048
     Dates: start: 19990820, end: 19990826
  9. ASPIRIN. [Suspect]
     Active Substance: ASPIRIN
     Dosage: 100 MILLIGRAM, QD
     Route: 048
  10. PIRETANIDE [Suspect]
     Active Substance: PIRETANIDE
     Indication: CARDIAC FAILURE
     Dosage: 1 DF, QD
     Route: 048
  11. MARCUMAR [Suspect]
     Active Substance: PHENPROCOUMON
     Dosage: 2 DOSAGE FORM, QD
     Route: 048
  12. LIQUEMIN N [Suspect]
     Active Substance: HEPARIN SODIUM
     Dosage: 10000 IU, QD
     Route: 058
     Dates: start: 19990821, end: 19990826
  13. LIQUEMIN N [Suspect]
     Active Substance: HEPARIN SODIUM
     Dosage: UNK
     Route: 042
  14. ASPIRIN. [Suspect]
     Active Substance: ASPIRIN
     Dosage: 100, 100 MILLIGRAMS DAILY
     Route: 048
  15. GLUCOSE [Suspect]
     Active Substance: DEXTROSE
     Indication: VOLUME BLOOD DECREASED
     Dosage: 500 ML (DAILY DOSE), , INTRAVENOUS
     Route: 042
     Dates: start: 19990820, end: 19990823
  16. ARELIX                             /00630801/ [Suspect]
     Active Substance: PIRETANIDE
     Dosage: 1 DOSAGE FORM, QD
     Route: 048
  17. KCL [Concomitant]
     Active Substance: POTASSIUM CHLORIDE
     Indication: HYPOKALAEMIA
     Dosage: UNK
     Route: 042
     Dates: start: 19990819, end: 19990823
  18. BIFITERAL [Suspect]
     Active Substance: LACTULOSE
     Dosage: 30 ML, QD
     Route: 048
  19. NITRO                              /00003201/ [Suspect]
     Active Substance: NITROGLYCERIN
     Indication: MYOCARDIAL INFARCTION
     Dosage: 2 MG, QH
     Route: 042
     Dates: start: 19990819, end: 19990820
  20. MINERALS NOS [Suspect]
     Active Substance: MINERALS
     Indication: PRODUCT USED FOR UNKNOWN INDICATION
     Dosage: UNK
  21. BIFITERAL [Suspect]
     Active Substance: LACTULOSE
     Indication: CONSTIPATION
     Dosage: 30 ML, QD
     Route: 048
     Dates: start: 19990820
  22. PRAXITEN [Suspect]
     Active Substance: OXAZEPAM
     Indication: RESTLESSNESS
     Dosage: 15 MG (DAILY DOSE), , ORAL
     Route: 048
     Dates: start: 19990819, end: 19990823
  23. KALIUM CHLORID [Suspect]
     Active Substance: POTASSIUM CHLORIDE
     Indication: HYPOKALAEMIA
     Dosage: UNK
     Route: 042
     Dates: start: 19990819, end: 19990823
  24. LIQUEMIN N [Suspect]
     Active Substance: HEPARIN SODIUM
     Indication: THROMBOSIS PROPHYLAXIS
     Dosage: UNK
     Route: 042
     Dates: start: 19990819, end: 19990820
  25. LASIX [Suspect]
     Active Substance: FUROSEMIDE
     Indication: CARDIAC FAILURE
     Dosage: 10 MG, QD
     Route: 042
     Dates: start: 19990820, end: 19990823
  26. BACTRIM [Suspect]
     Active Substance: SULFAMETHOXAZOLE\TRIMETHOPRIM
     Indication: URINARY TRACT INFECTION
     Dosage: 1 DF, QD
     Route: 048
     Dates: start: 19990823, end: 19990828
  27. LASIX [Suspect]
     Active Substance: FUROSEMIDE
     Indication: CARDIAC FAILURE
     Dosage: 2 DF, QD
     Route: 048
     Dates: start: 19990823, end: 19990830
  28. MINERALS NOS [Suspect]
     Active Substance: MINERALS
     Dosage: UNK
     Route: 048
  29. MARCUMAR [Suspect]
     Active Substance: PHENPROCOUMON
     Indication: THROMBOSIS PROPHYLAXIS
     Dosage: 1 DF, QD
     Route: 048
     Dates: start: 19990821
  30. MARCUMAR [Suspect]
     Active Substance: PHENPROCOUMON
     Dosage: 1 DOSAGE FORM, QD
     Route: 048
  31. REMESTAN [Suspect]
     Active Substance: TEMAZEPAM
     Indication: RESTLESSNESS
     Dosage: 1 DF, QD
     Route: 048
     Dates: start: 19990819, end: 19990823
  32. PRAXITEN [Suspect]
     Active Substance: OXAZEPAM
     Dosage: 15 MG, QD
     Route: 065
     Dates: start: 19990819, end: 19990823
  33. ESIDRIX [Suspect]
     Active Substance: HYDROCHLOROTHIAZIDE
     Dosage: 1 DF, QD
     Route: 048
     Dates: start: 19990823, end: 19990830
  34. ANTRA                              /00661201/ [Suspect]
     Active Substance: OMEPRAZOLE
     Indication: PROPHYLAXIS AGAINST GASTROINTESTINAL ULCER
     Dosage: 20 MG, QD,20, 20 MILLIGRAMS DAILY
     Route: 048
     Dates: start: 19990819, end: 19990831
  35. NITROGLYCERIN. [Suspect]
     Active Substance: NITROGLYCERIN
     Indication: MYOCARDIAL INFARCTION
     Dosage: 2 MG, 1 HOUR
     Route: 042
     Dates: start: 19990819, end: 19990820

REACTIONS (5)
  - Stevens-Johnson syndrome [Recovered/Resolved]
  - Urinary tract infection [Unknown]
  - Blood creatinine increased [Unknown]
  - Toxic epidermal necrolysis [Unknown]
  - Blood urea increased [Unknown]

NARRATIVE: CASE EVENT DATE: 19990830
